FAERS Safety Report 7911448-2 (Version None)
Quarter: 2011Q4

REPORT INFORMATION
  Report Type: 
  Country: None (occurrence: None)
  Receive Date: 20111109
  Receipt Date: 20111101
  Transmission Date: 20120403
  Serious: Yes (Other)
  Sender: FDA-Public Use
  Company Number: AUR-APL-2011-05716

PATIENT
  Age: 64 Year
  Sex: Female

DRUGS (11)
  1. METFORMIN HCL [Suspect]
     Indication: TYPE 2 DIABETES MELLITUS
     Dosage: (500 MG,1 D)
  2. EFFEXOR [Concomitant]
  3. LYRICA [Suspect]
     Indication: DIABETIC NEUROPATHY
     Dosage: (75 MG,THREE TO FOUR TIMES A DAY),ORAL
     Route: 048
     Dates: end: 20111001
  4. ASPIRIN [Concomitant]
  5. OMEPRAZOLE [Concomitant]
  6. ISOSORBIDE MONONITRATE [Concomitant]
  7. FUROSEMIDE [Concomitant]
  8. BYETTA [Concomitant]
  9. DIOVAN [Concomitant]
  10. METHOCARBAMOL [Concomitant]
  11. SIMVASTATIN [Concomitant]

REACTIONS (7)
  - HEADACHE [None]
  - NAUSEA [None]
  - WEIGHT DECREASED [None]
  - DRUG DOSE OMISSION [None]
  - PAIN [None]
  - HYPOAESTHESIA [None]
  - PARAESTHESIA [None]
